FAERS Safety Report 7466332-8 (Version None)
Quarter: 2011Q2

REPORT INFORMATION
  Report Type: 
  Country: None (occurrence: None)
  Receive Date: 20110509
  Receipt Date: 20100722
  Transmission Date: 20111010
  Serious: No
  Sender: FDA-Public Use
  Company Number: US-ALEXION-A201000859

PATIENT
  Sex: Female
  Weight: 96.9 kg

DRUGS (9)
  1. FLOVENT [Concomitant]
  2. MULTI-VITAMINS [Concomitant]
  3. RHINOCORT [Concomitant]
  4. SOLIRIS [Suspect]
     Indication: ANAEMIA HAEMOLYTIC AUTOIMMUNE
     Dosage: 600 MG, QW
     Route: 042
     Dates: start: 20100423, end: 20100514
  5. SOLIRIS [Suspect]
     Dosage: 900 MG, Q2W
     Route: 042
     Dates: start: 20010521
  6. FOLIC ACID [Concomitant]
  7. WARFARIN [Concomitant]
     Dosage: 5-10 MG
  8. GLUCOSAMINE [Concomitant]
  9. FISH OIL [Concomitant]

REACTIONS (1)
  - SKIN EXFOLIATION [None]
